FAERS Safety Report 17677163 (Version 4)
Quarter: 2020Q3

REPORT INFORMATION
  Report Type: Report from Study
  Country: US (occurrence: US)
  Receive Date: 20200416
  Receipt Date: 20200909
  Transmission Date: 20201102
  Serious: Yes (Hospitalization)
  Sender: FDA-Public Use
  Company Number: US-EISAI MEDICAL RESEARCH-EC-2020-073263

PATIENT
  Age: 74 Year
  Sex: Female

DRUGS (2)
  1. LENVIMA [Suspect]
     Active Substance: LENVATINIB
     Indication: HEPATOCELLULAR CARCINOMA
     Route: 048
     Dates: start: 20200323, end: 2020
  2. LENVIMA [Suspect]
     Active Substance: LENVATINIB
     Route: 048
     Dates: start: 2020

REACTIONS (12)
  - Fatigue [Unknown]
  - Blood pressure increased [Recovered/Resolved]
  - Pneumonia [Unknown]
  - Amnesia [Unknown]
  - Dizziness [Unknown]
  - Vomiting [Unknown]
  - Tremor [Unknown]
  - Visual impairment [Unknown]
  - Ammonia increased [Unknown]
  - Liver disorder [Unknown]
  - Confusional state [Unknown]
  - Intentional product misuse [Unknown]

NARRATIVE: CASE EVENT DATE: 2020
